FAERS Safety Report 9942183 (Version 2)
Quarter: 2014Q1

REPORT INFORMATION
  Report Type: Report from Study
  Country: US (occurrence: US)
  Receive Date: 20140303
  Receipt Date: 20140303
  Transmission Date: 20141002
  Serious: Yes (Other)
  Sender: FDA-Public Use
  Company Number: US-ABBVIE-12P-163-1026452-00

PATIENT
  Sex: Male

DRUGS (1)
  1. HUMIRA [Suspect]
     Indication: CROHN^S DISEASE
     Route: 058
     Dates: start: 201203

REACTIONS (8)
  - Basal cell carcinoma [Unknown]
  - Mass [Unknown]
  - Memory impairment [Unknown]
  - Drug dose omission [Unknown]
  - Myalgia [Unknown]
  - Vitamin D deficiency [Unknown]
  - Iron deficiency [Unknown]
  - Vitamin B12 deficiency [Unknown]
